FAERS Safety Report 5982684-X (Version None)
Quarter: 2008Q4

REPORT INFORMATION
  Report Type: 
  Country: None (occurrence: None)
  Receive Date: 20081205
  Receipt Date: 20081205
  Transmission Date: 20090506
  Serious: No
  Sender: FDA-Public Use
  Company Number: None

PATIENT
  Age: 59 Year
  Sex: Male
  Weight: 115.6672 kg

DRUGS (1)
  1. NIASPAN [Suspect]
     Indication: BLOOD CHOLESTEROL
     Dosage: ONE TABLET DAILY PO
     Route: 048
     Dates: start: 20081204, end: 20081204

REACTIONS (5)
  - CHILLS [None]
  - FEELING ABNORMAL [None]
  - HYPERHIDROSIS [None]
  - PRESYNCOPE [None]
  - RASH ERYTHEMATOUS [None]
